FAERS Safety Report 14623851 (Version 2)
Quarter: 2018Q1

REPORT INFORMATION
  Report Type: Report from Study
  Country: US (occurrence: US)
  Receive Date: 20180312
  Receipt Date: 20180327
  Transmission Date: 20180509
  Serious: Yes (Hospitalization)
  Sender: FDA-Public Use
  Company Number: US-BEH-2018088582

PATIENT
  Age: 66 Year
  Sex: Male
  Weight: 70.3 kg

DRUGS (1)
  1. ZEMAIRA [Suspect]
     Active Substance: .ALPHA.1-PROTEINASE INHIBITOR HUMAN
     Indication: ALPHA-1 ANTI-TRYPSIN DEFICIENCY
     Dosage: UNK, QW
     Route: 042

REACTIONS (2)
  - Coronary artery occlusion [Unknown]
  - Atrial fibrillation [Unknown]
